FAERS Safety Report 6377477-8 (Version None)
Quarter: 2009Q3

REPORT INFORMATION
  Report Type: 
  Country: None (occurrence: None)
  Receive Date: 20090925
  Receipt Date: 20090916
  Transmission Date: 20100115
  Serious: Yes (Death)
  Sender: FDA-Public Use
  Company Number: US-BAYER-200932767GPV

PATIENT
  Sex: Male

DRUGS (1)
  1. SOTALOL [Suspect]
     Indication: ATRIAL TACHYCARDIA
     Route: 048

REACTIONS (1)
  - DEATH [None]
